FAERS Safety Report 9516961 (Version 1)
Quarter: 2013Q3

REPORT INFORMATION
  Report Type: Spontaneous
  Country: US (occurrence: US)
  Receive Date: 20130911
  Receipt Date: 20130911
  Transmission Date: 20140515
  Serious: No
  Sender: FDA-Public Use
  Company Number: US-PFIZER INC-2013258442

PATIENT
  Sex: Female

DRUGS (2)
  1. TOVIAZ [Suspect]
     Dosage: 4 MG, 1X/DAY
     Dates: start: 2013
  2. CYMBALTA [Concomitant]
     Dosage: UNK

REACTIONS (2)
  - Cough [Unknown]
  - Sleep disorder [Unknown]
